FAERS Safety Report 20991325 (Version 2)
Quarter: 2022Q3

REPORT INFORMATION
  Report Type: Spontaneous
  Country: GB (occurrence: GB)
  Receive Date: 20220622
  Receipt Date: 20220817
  Transmission Date: 20221027
  Serious: Yes (Other)
  Sender: FDA-Public Use
  Company Number: GB-IPSEN Group, Research and Development-2022-10538

PATIENT
  Age: 64 Year
  Sex: Male

DRUGS (2)
  1. FINASTERIDE [Suspect]
     Active Substance: FINASTERIDE
     Indication: Product used for unknown indication
     Dosage: UNK
     Route: 065
  2. LANREOTIDE ACETATE [Suspect]
     Active Substance: LANREOTIDE ACETATE
     Indication: Neuroendocrine tumour
     Dosage: 120 MILLIGRAM, EVERY 4 WEEKS (120MG/0.5ML)
     Route: 058

REACTIONS (5)
  - Blood urine present [Unknown]
  - Diarrhoea [Unknown]
  - Depressed mood [Unknown]
  - Fatigue [Unknown]
  - Haematuria [Not Recovered/Not Resolved]
